FAERS Safety Report 9265961 (Version 2)
Quarter: 2013Q2

REPORT INFORMATION
  Report Type: Other
  Country: IT (occurrence: IT)
  Receive Date: 20130501
  Receipt Date: 20130503
  Transmission Date: 20140414
  Serious: Yes (Hospitalization)
  Sender: FDA-Public Use
  Company Number: IT-NICOBRDEVP-2013-07285

PATIENT
  Age: 15 Year
  Sex: Male

DRUGS (6)
  1. RAMIPRIL (UNKNOWN) [Suspect]
     Indication: PRODUCT USED FOR UNKNOWN INDICATION
     Dosage: OVERDOSE WITH 7 DOSAGE FORM TOTAL
     Route: 048
     Dates: start: 20130218, end: 20130218
  2. PARACETAMOL (UNKNOWN) [Suspect]
     Indication: PRODUCT USED FOR UNKNOWN INDICATION
     Dosage: OVERDOSE WITH 4 DOSAGE FORM TOTAL
     Route: 048
     Dates: start: 20130218, end: 20130218
  3. LEVOCETIRIZINE [Suspect]
     Indication: PRODUCT USED FOR UNKNOWN INDICATION
     Dosage: OVERDOSE WITH 15 DOSAGE FORM TOTAL
     Route: 048
     Dates: start: 20130218, end: 20130218
  4. ZITROMAX [Suspect]
     Indication: PRODUCT USED FOR UNKNOWN INDICATION
     Dosage: OVERDOSE WITH 3 DOSAGE FORM TOTAL
     Route: 048
     Dates: start: 20130218, end: 20130218
  5. PURSENNID /00142207/ [Suspect]
     Indication: PRODUCT USED FOR UNKNOWN INDICATION
     Dosage: OVERDOSE WITH 30 DOSAGE FORM TOTAL
     Route: 048
     Dates: start: 20130218, end: 20130218
  6. ALMOTRIPTAN [Suspect]
     Indication: PRODUCT USED FOR UNKNOWN INDICATION
     Dosage: OVERDOSE WITH 5 DOSAGE FORM TOTAL
     Route: 048
     Dates: start: 20130218, end: 20130218

REACTIONS (5)
  - Confusional state [Unknown]
  - Somnolence [Unknown]
  - Intentional drug misuse [Unknown]
  - Overdose [Unknown]
  - Intentional overdose [None]
